FAERS Safety Report 8410990-8 (Version None)
Quarter: 2012Q2

REPORT INFORMATION
  Report Type: 
  Country: None (occurrence: None)
  Receive Date: 20120605
  Receipt Date: 20120526
  Transmission Date: 20120825
  Serious: Yes (Hospitalization)
  Sender: FDA-Public Use
  Company Number: US-JNJFOC-20120600221

PATIENT
  Sex: Female
  Weight: 42.55 kg

DRUGS (6)
  1. CORTIFOAM [Concomitant]
  2. PREDNISONE [Concomitant]
  3. PENTASA [Concomitant]
     Route: 048
  4. ACETAMINOPHEN [Concomitant]
  5. REMICADE [Suspect]
     Indication: COLITIS ULCERATIVE
     Route: 042
  6. RIFAXIMIN [Concomitant]
     Indication: INFLAMMATORY BOWEL DISEASE

REACTIONS (1)
  - COLITIS ULCERATIVE [None]
